FAERS Safety Report 8095338-3 (Version None)
Quarter: 2012Q1

REPORT INFORMATION
  Report Type: 
  Country: None (occurrence: None)
  Receive Date: 20120131
  Receipt Date: 20120116
  Transmission Date: 20120608
  Serious: Yes (Hospitalization)
  Sender: FDA-Public Use
  Company Number: TW-WATSON-2012-00887

PATIENT
  Age: 27 Year
  Sex: Female

DRUGS (3)
  1. OLANZAPINE [Suspect]
     Indication: MANIA
     Dosage: 20 MG, DAILY
     Dates: start: 20080701
  2. VALPROATE SODIUM [Suspect]
     Indication: PRODUCT USED FOR UNKNOWN INDICATION
     Dosage: 1000 MG, DAILY
     Dates: start: 20090601
  3. QUETIAPINE [Suspect]
     Indication: MANIA
     Dosage: 400 MG, DAILY

REACTIONS (7)
  - NEUTROPENIA [None]
  - DRUG RASH WITH EOSINOPHILIA AND SYSTEMIC SYMPTOMS [None]
  - DRUG INTERACTION [None]
  - CHILLS [None]
  - TACHYCARDIA [None]
  - THROMBOCYTOPENIA [None]
  - TOXIC SKIN ERUPTION [None]
